FAERS Safety Report 21608865 (Version 1)
Quarter: 2022Q4

REPORT INFORMATION
  Report Type: Spontaneous
  Country: US (occurrence: None)
  Receive Date: 20221116
  Receipt Date: 20221116
  Transmission Date: 20230113
  Serious: Yes (Life-Threatening, Hospitalization, Disabling)
  Sender: FDA-Public Use
  Company Number: None

PATIENT
  Age: 59 Year
  Sex: Male
  Weight: 73.8 kg

DRUGS (2)
  1. KLONOPIN [Suspect]
     Active Substance: CLONAZEPAM
  2. HYDROCODONE [Suspect]
     Active Substance: HYDROCODONE

REACTIONS (5)
  - Product contamination [None]
  - Hypertension [None]
  - Hypoaesthesia [None]
  - Vision blurred [None]
  - Wrong drug [None]

NARRATIVE: CASE EVENT DATE: 20221001
